FAERS Safety Report 7187063-8 (Version None)
Quarter: 2010Q4

REPORT INFORMATION
  Report Type: 
  Country: None (occurrence: None)
  Receive Date: 20101222
  Receipt Date: 20101216
  Transmission Date: 20110411
  Serious: Yes (Death, Other)
  Sender: FDA-Public Use
  Company Number: US-AMGEN-USASP2010009843

PATIENT

DRUGS (4)
  1. NPLATE [Suspect]
     Indication: IDIOPATHIC THROMBOCYTOPENIC PURPURA
     Dates: start: 20100608
  2. IMMUNOGLOBULINS [Concomitant]
     Dosage: UNK
     Dates: start: 20100501
  3. CORTICOSTEROIDS [Concomitant]
     Dosage: UNK
     Dates: start: 20100501
  4. RITUXIMAB [Concomitant]
     Dosage: UNK
     Dates: start: 20100501

REACTIONS (2)
  - RENAL FAILURE ACUTE [None]
  - SPLEEN DISORDER [None]
